FAERS Safety Report 11592087 (Version 3)
Quarter: 2016Q1

REPORT INFORMATION
  Report Type: Spontaneous
  Country: US (occurrence: US)
  Receive Date: 20151005
  Receipt Date: 20160208
  Transmission Date: 20160525
  Serious: No
  Sender: FDA-Public Use
  Company Number: US-PFIZER INC-2015315944

PATIENT
  Age: 62 Year
  Sex: Female
  Weight: 57 kg

DRUGS (8)
  1. FEMARA [Suspect]
     Active Substance: LETROZOLE
     Dosage: UNK
  2. CARBOPLATIN. [Concomitant]
     Active Substance: CARBOPLATIN
     Dosage: UNK, CYCLIC
  3. TAXOL [Concomitant]
     Active Substance: PACLITAXEL
     Dosage: 50 MG/M2, CYCLIC, DAY 1, 8 AND 15
  4. IBRANCE [Suspect]
     Active Substance: PALBOCICLIB
     Indication: BREAST CANCER METASTATIC
     Dosage: 125 MG, DAILY
     Route: 048
  5. CALCIUM + VITAMIN D3 [Concomitant]
     Active Substance: CALCIUM CARBONATE\CHOLECALCIFEROL
     Dosage: 650 MG, DAILY
  6. ASPIRIN EC [Concomitant]
     Active Substance: ASPIRIN
     Dosage: 81 MG, 1X/DAY
  7. ATENOLOL. [Concomitant]
     Active Substance: ATENOLOL
     Dosage: 50 MG, 1X/DAY
  8. LISINOPRIL. [Concomitant]
     Active Substance: LISINOPRIL
     Dosage: 5 MG, 1X/DAY

REACTIONS (7)
  - Weight decreased [Unknown]
  - Nausea [Unknown]
  - Disease progression [Unknown]
  - Hepatomegaly [Unknown]
  - Bone pain [Unknown]
  - Breast cancer metastatic [Unknown]
  - Fatigue [Unknown]
